FAERS Safety Report 9234498 (Version 1)
Quarter: 2013Q2

REPORT INFORMATION
  Report Type: Spontaneous
  Country: US (occurrence: US)
  Receive Date: 20130416
  Receipt Date: 20130416
  Transmission Date: 20140414
  Serious: Yes (Other)
  Sender: FDA-Public Use
  Company Number: US-PFIZER INC-2013117703

PATIENT
  Age: 59 Year
  Sex: Male

DRUGS (1)
  1. CELEBREX [Suspect]
     Indication: POSTOPERATIVE CARE
     Dosage: 200 MG, UNK
     Route: 048
     Dates: start: 20130402, end: 20130403

REACTIONS (3)
  - Stevens-Johnson syndrome [Recovered/Resolved]
  - Oropharyngeal discomfort [Recovered/Resolved]
  - Musculoskeletal discomfort [Recovered/Resolved]
